FAERS Safety Report 6575581-2 (Version None)
Quarter: 2010Q1

REPORT INFORMATION
  Report Type: 
  Country: None (occurrence: None)
  Receive Date: 20100209
  Receipt Date: 20100208
  Transmission Date: 20100710
  Serious: Yes (Other)
  Sender: FDA-Public Use
  Company Number: A0802650A

PATIENT
  Age: 33 Year
  Sex: Female
  Weight: 113.6 kg

DRUGS (2)
  1. AVANDIA [Suspect]
     Dosage: 4MG PER DAY
     Route: 048
     Dates: start: 20010212, end: 20020827
  2. AVANDAMET [Suspect]
     Route: 048
     Dates: start: 20030403, end: 20031021

REACTIONS (2)
  - CARDIAC FAILURE CONGESTIVE [None]
  - CARDIOVASCULAR DISORDER [None]
